FAERS Safety Report 8766408 (Version 2)
Quarter: 2012Q4

REPORT INFORMATION
  Report Type: 
  Country: FR (occurrence: FR)
  Receive Date: 20120903
  Receipt Date: 20121129
  Transmission Date: 20130627
  Serious: Yes (Hospitalization, Other)
  Sender: FDA-Public Use
  Company Number: PHHY2012FR075602

PATIENT
  Age: 81 Year
  Sex: Female

DRUGS (8)
  1. RASILEZ HCT [Suspect]
     Indication: HYPERTENSION
     Dosage: 1 DF, (300 mg alis and 25 mg hctz) QD
     Route: 048
     Dates: start: 201107, end: 20120503
  2. CLASTOBAN [Suspect]
     Dates: start: 2010, end: 20120504
  3. HYPERIUM [Suspect]
     Indication: HYPERTENSION
     Dosage: 1 mg, BID
     Dates: start: 201107, end: 20120503
  4. DIFFU K [Suspect]
     Dates: start: 201109, end: 20120503
  5. DAFLON [Suspect]
     Dosage: 6 DF, daily
     Dates: start: 20120413
  6. DAFLON [Suspect]
     Dosage: 4 DF, daily
     Dates: end: 20120430
  7. AUGMENTIN [Suspect]
     Indication: LUNG INFECTION
     Route: 048
     Dates: start: 20120424, end: 20120503
  8. FUROSEMIDE [Concomitant]

REACTIONS (11)
  - Anaemia [Recovered/Resolved]
  - Dermatitis exfoliative [Recovered/Resolved]
  - Eczema [Unknown]
  - Toxic skin eruption [Unknown]
  - Hyperkeratosis [Unknown]
  - Parakeratosis [Unknown]
  - Epidermal necrosis [Unknown]
  - Skin lesion [Unknown]
  - Lung infection [Unknown]
  - Haemorrhoids [Unknown]
  - Diarrhoea [Unknown]
